FAERS Safety Report 9468049 (Version 1)
Quarter: 2013Q3

REPORT INFORMATION
  Report Type: Report from Study
  Country: US (occurrence: US)
  Receive Date: 20130821
  Receipt Date: 20130821
  Transmission Date: 20140515
  Serious: Yes (Hospitalization)
  Sender: FDA-Public Use
  Company Number: US-SANOFI-AVENTIS-2013SA082730

PATIENT
  Age: 50 Year
  Sex: 0

DRUGS (6)
  1. RIFAPENTINE [Suspect]
     Indication: LATENT TUBERCULOSIS
     Route: 065
  2. ACE INHIBITOR NOS [Concomitant]
  3. ACE INHIBITOR NOS [Concomitant]
  4. ASA [Concomitant]
  5. ALL OTHER THERAPEUTIC PRODUCTS [Concomitant]
  6. ALL OTHER THERAPEUTIC PRODUCTS [Concomitant]

REACTIONS (10)
  - Hypersensitivity [Unknown]
  - Chills [Unknown]
  - Myalgia [Unknown]
  - Nausea [Unknown]
  - Vomiting [Unknown]
  - Fatigue [Unknown]
  - Feeling abnormal [Unknown]
  - Headache [Unknown]
  - Pyrexia [Unknown]
  - Hypotension [Unknown]
